FAERS Safety Report 16327026 (Version 1)
Quarter: 2019Q2

REPORT INFORMATION
  Report Type: Spontaneous
  Country: US (occurrence: US)
  Receive Date: 20190517
  Receipt Date: 20190517
  Transmission Date: 20190711
  Serious: No
  Sender: FDA-Public Use
  Company Number: US-SA-2019SA133789

PATIENT
  Age: 68 Year
  Sex: Male

DRUGS (9)
  1. HYDROCODONE/ACETAMINOPHEN [Concomitant]
     Active Substance: ACETAMINOPHEN\HYDROCODONE
  2. LISINOPRIL. [Concomitant]
     Active Substance: LISINOPRIL
  3. NITROGLYCERIN. [Suspect]
     Active Substance: NITROGLYCERIN
  4. AMLODIPINE BESILATE [Concomitant]
     Active Substance: AMLODIPINE BESYLATE
  5. CARVEDILOL. [Concomitant]
     Active Substance: CARVEDILOL
  6. BENZONATATE. [Concomitant]
     Active Substance: BENZONATATE
  7. PRALUENT [Suspect]
     Active Substance: ALIROCUMAB
     Route: 058
  8. ATORVASTATIN CALCIUM. [Concomitant]
     Active Substance: ATORVASTATIN CALCIUM
  9. CEFDINIR. [Concomitant]
     Active Substance: CEFDINIR

REACTIONS (4)
  - Rash [Recovered/Resolved]
  - Urticaria [Recovered/Resolved]
  - Headache [Recovered/Resolved]
  - Hypersensitivity [Recovered/Resolved]
